FAERS Safety Report 22207795 (Version 1)
Quarter: 2023Q2

REPORT INFORMATION
  Report Type: Spontaneous
  Country: US (occurrence: None)
  Receive Date: 20230413
  Receipt Date: 20230413
  Transmission Date: 20230722
  Serious: Yes (Death)
  Sender: FDA-Public Use
  Company Number: None

PATIENT
  Age: 65 Year
  Sex: Male
  Weight: 73.31 kg

DRUGS (17)
  1. VIVITROL [Suspect]
     Active Substance: NALTREXONE
  2. XIFAXAN [Suspect]
     Active Substance: RIFAXIMIN
     Dosage: FREQUENCY : TWICE A DAY;?
     Route: 048
  3. ALBUTEROL SULFATE [Concomitant]
     Active Substance: ALBUTEROL SULFATE
  4. CITALOPRAM [Concomitant]
     Active Substance: CITALOPRAM HYDROBROMIDE
  5. VITAMINS [Concomitant]
     Active Substance: VITAMINS
  6. Ferrous Sulfate 324mg [Concomitant]
  7. FOLIC ACID [Concomitant]
     Active Substance: FOLIC ACID
  8. Lactulose 10mg/15mL [Concomitant]
  9. MELATONIN [Concomitant]
     Active Substance: MELATONIN
  10. NALTREXONE [Concomitant]
     Active Substance: NALTREXONE
  11. OMEPRAZOLE [Concomitant]
     Active Substance: OMEPRAZOLE
  12. Oyster D 250mg [Concomitant]
  13. SPIRONOLACTONE [Concomitant]
     Active Substance: SPIRONOLACTONE
  14. Vitamin B-1 100mg [Concomitant]
  15. Vitamin D3 1000mg [Concomitant]
  16. VIVITROL [Concomitant]
     Active Substance: NALTREXONE
  17. GENVOYA [Suspect]
     Active Substance: COBICISTAT\ELVITEGRAVIR\EMTRICITABINE\TENOFOVIR ALAFENAMIDE FUMARATE

REACTIONS (2)
  - Pulmonary embolism [None]
  - Adverse event [None]

NARRATIVE: CASE EVENT DATE: 20230410
